FAERS Safety Report 21747163 (Version 2)
Quarter: 2025Q1

REPORT INFORMATION
  Report Type: Other
  Country: US (occurrence: US)
  Receive Date: 20221219
  Receipt Date: 20250113
  Transmission Date: 20250409
  Serious: No
  Sender: ALVOGEN
  Company Number: US-ALVOGEN-2022-ALVOGEN-120583

PATIENT

DRUGS (6)
  1. DEXAMETHASONE [Suspect]
     Active Substance: DEXAMETHASONE
     Indication: COVID-19
  2. ALBUTEROL [Suspect]
     Active Substance: ALBUTEROL
     Indication: COVID-19
  3. BUDESONIDE [Suspect]
     Active Substance: BUDESONIDE
     Indication: COVID-19
  4. EPINEPHRINE [Suspect]
     Active Substance: EPINEPHRINE
     Indication: COVID-19
  5. LIDOCAINE [Suspect]
     Active Substance: LIDOCAINE
     Indication: COVID-19
  6. PULMOZYME [Suspect]
     Active Substance: DORNASE ALFA
     Indication: COVID-19

REACTIONS (1)
  - Cough [Unknown]
